FAERS Safety Report 8530122-5 (Version None)
Quarter: 2012Q3

REPORT INFORMATION
  Report Type: 
  Country: None (occurrence: None)
  Receive Date: 20120723
  Receipt Date: 20120718
  Transmission Date: 20120928
  Serious: Yes (Other)
  Sender: FDA-Public Use
  Company Number: PHEH2012US014092

PATIENT
  Sex: Female

DRUGS (8)
  1. XANAX [Concomitant]
     Dosage: UNK UKN, UNK
  2. CELEXA [Concomitant]
     Dosage: UNK UKN, UNK
  3. NEUROTON [Concomitant]
     Dosage: UNK UKN, UNK
  4. DIOVAN [Suspect]
     Dosage: 320 MG, QD
  5. ETODOLAC [Concomitant]
     Dosage: UNK UKN, UNK
  6. ASPIRIN [Concomitant]
     Dosage: UNK UKN, UNK
  7. ZOCOR [Concomitant]
     Dosage: UNK UKN, UNK
  8. VITAMIN D [Concomitant]
     Dosage: UNK UKN, UNK

REACTIONS (2)
  - LYME DISEASE [None]
  - AMNESIA [None]
